FAERS Safety Report 13482967 (Version 1)
Quarter: 2017Q2

REPORT INFORMATION
  Report Type: Spontaneous
  Country: ES (occurrence: ES)
  Receive Date: 20170426
  Receipt Date: 20170426
  Transmission Date: 20170830
  Serious: Yes (Other)
  Sender: FDA-Public Use
  Company Number: ES-ROCHE-1923135

PATIENT
  Age: 45 Year
  Sex: Female

DRUGS (1)
  1. CELLCEPT [Suspect]
     Active Substance: MYCOPHENOLATE MOFETIL\MYCOPHENOLATE MOFETIL HYDROCHLORIDE
     Indication: SYSTEMIC LUPUS ERYTHEMATOSUS
     Dosage: 1000 MG IN THE MORNING AND 500 MG AT NIGHT
     Route: 065
     Dates: start: 2011

REACTIONS (6)
  - Intracranial pressure increased [Not Recovered/Not Resolved]
  - Off label use [Unknown]
  - CSF volume increased [Not Recovered/Not Resolved]
  - Headache [Not Recovered/Not Resolved]
  - Lymphopenia [Not Recovered/Not Resolved]
  - Product use in unapproved indication [Unknown]

NARRATIVE: CASE EVENT DATE: 2011
